FAERS Safety Report 9463557 (Version 1)
Quarter: 2013Q3

REPORT INFORMATION
  Report Type: Spontaneous
  Country: FR (occurrence: FR)
  Receive Date: 20130819
  Receipt Date: 20130819
  Transmission Date: 20140515
  Serious: Yes (Life-Threatening)
  Sender: FDA-Public Use
  Company Number: FR-BRISTOL-MYERS SQUIBB COMPANY-19192343

PATIENT
  Age: 66 Year
  Sex: Male

DRUGS (7)
  1. GLUCOPHAGE TABS 1000 MG [Suspect]
     Indication: TYPE 2 DIABETES MELLITUS
     Route: 048
     Dates: end: 20130605
  2. PRAXILENE [Suspect]
     Dosage: CAPS?100 MG
     Route: 048
     Dates: end: 20130605
  3. FLUDEX [Suspect]
     Dosage: 1.5 MG
     Route: 048
  4. INEGY [Suspect]
     Indication: DYSLIPIDAEMIA
     Dosage: 1DF: 10 MG/20 MG
     Route: 048
  5. LASILIX [Suspect]
     Route: 048
     Dates: start: 2013
  6. RILMENIDINE [Suspect]
     Dosage: 1DF: 2
     Route: 048
     Dates: start: 201304
  7. KARDEGIC [Suspect]
     Dosage: 75 MG
     Route: 048

REACTIONS (2)
  - Lactic acidosis [Recovered/Resolved]
  - Renal failure acute [Recovering/Resolving]
